FAERS Safety Report 6768339-2 (Version None)
Quarter: 2010Q2

REPORT INFORMATION
  Report Type: 
  Country: None (occurrence: None)
  Receive Date: 20100614
  Receipt Date: 20100610
  Transmission Date: 20101027
  Serious: Yes (Hospitalization)
  Sender: FDA-Public Use
  Company Number: FR-BRISTOL-MYERS SQUIBB COMPANY-15129901

PATIENT
  Age: 73 Year
  Sex: Male

DRUGS (21)
  1. DAFALGAN CODEINE TABS [Suspect]
     Indication: BACK PAIN
     Dates: start: 20100409, end: 20100413
  2. GLUCOPHAGE [Suspect]
     Indication: DIABETES MELLITUS
     Dates: start: 20090101, end: 20100407
  3. CITALOPRAM HYDROBROMIDE [Suspect]
     Indication: DEPRESSION
     Dates: start: 20100410, end: 20100413
  4. PREVISCAN [Suspect]
     Indication: ATRIAL FIBRILLATION
     Dates: start: 20090101, end: 20100413
  5. PERINDOPRIL [Suspect]
     Indication: HYPERTENSION
     Dates: start: 20090101, end: 20100408
  6. LIPANTHYL [Suspect]
     Indication: DYSLIPIDAEMIA
     Dates: start: 20090101, end: 20100413
  7. TOPALGIC LP [Suspect]
     Indication: BACK PAIN
     Dates: start: 20100407, end: 20100414
  8. MYSOLINE [Suspect]
     Indication: ESSENTIAL TREMOR
     Dosage: 187.5 MG
     Dates: start: 20090101, end: 20100413
  9. THIOCOLCHICOSIDE [Suspect]
     Indication: BACK PAIN
     Dates: start: 20100407, end: 20100414
  10. LOXEN [Suspect]
     Indication: HYPERTENSION
     Dates: start: 20100411, end: 20100413
  11. IMOVANE [Concomitant]
  12. NEXIUM [Concomitant]
  13. ISOPTIN SR [Concomitant]
  14. LASIX [Concomitant]
  15. MOLSIDOMINE [Concomitant]
  16. NOVOMIX [Concomitant]
  17. RAMIPRIL [Concomitant]
  18. CREON [Concomitant]
     Dates: end: 20100414
  19. DOLIPRANE [Concomitant]
     Dates: start: 20100407, end: 20100409
  20. KAYEXALATE [Concomitant]
     Dosage: 08APR2010
     Dates: start: 20100409
  21. FORLAX [Concomitant]
     Dates: start: 20100411, end: 20100417

REACTIONS (1)
  - CYTOLYTIC HEPATITIS [None]
